FAERS Safety Report 8403568-3 (Version None)
Quarter: 2012Q2

REPORT INFORMATION
  Report Type: 
  Country: None (occurrence: None)
  Receive Date: 20120601
  Receipt Date: 20120530
  Transmission Date: 20120825
  Serious: Yes (Other)
  Sender: FDA-Public Use
  Company Number: US-PFIZER INC-2012130547

PATIENT
  Sex: Female
  Weight: 66.667 kg

DRUGS (13)
  1. VYTORIN [Concomitant]
     Dosage: 10/40 MG, UNK
  2. CLONAZEPAM [Concomitant]
     Dosage: 1 MG, ONE OR TWO TIMES A DAY
  3. CALCIUM CARBONATE [Suspect]
     Dosage: 1200 MG, 1X/DAY
     Route: 048
  4. VICOPROFEN [Concomitant]
     Dosage: 7.5/200 MG, EVERY FOUR TO SIX HOURS
  5. EFFEXOR XR [Concomitant]
     Dosage: 150 MG, UNK
  6. GABAPENTIN [Concomitant]
     Dosage: UNK, TWO OR THREE TIMES A DAY
  7. CHANTIX [Suspect]
     Dosage: UNK
     Route: 048
     Dates: end: 20120201
  8. CETIRIZINE [Concomitant]
     Dosage: 10 MG, UNK
  9. PSEUDOEPHEDRINE [Concomitant]
     Dosage: 30 MG, AS NEEDED
  10. CRANBERRY [Concomitant]
     Dosage: 8400 MG (TWO 4200MG), 1X/DAY
  11. NEURONTIN [Concomitant]
     Dosage: 600 MG, UNK
  12. NIASPAN [Concomitant]
     Dosage: 500 MG, UNK
  13. CHANTIX [Suspect]
     Indication: SMOKING CESSATION THERAPY
     Dosage: 0.5 MG, 1X/DAY
     Route: 048
     Dates: start: 20120101

REACTIONS (3)
  - FOOT FRACTURE [None]
  - ABNORMAL DREAMS [None]
  - VOMITING [None]
